FAERS Safety Report 9064664 (Version 1)
Quarter: 2013Q1

REPORT INFORMATION
  Report Type: Spontaneous
  Country: US (occurrence: US)
  Receive Date: 20130128
  Receipt Date: 20130128
  Transmission Date: 20140127
  Serious: Yes (Other)
  Sender: FDA-Public Use
  Company Number: PHEH2013US001954

PATIENT
  Sex: Female

DRUGS (9)
  1. DIOVAN HCT [Suspect]
     Indication: HYPERTENSION
     Dosage: 1 DF (320MG VALS/ 25MG HCT), QD
     Route: 048
  2. SYNTHROID [Concomitant]
     Indication: THYROID DISORDER
     Dosage: 62.5 MG, UNK
  3. IRON [Concomitant]
     Dosage: 10 MG, UNK
  4. LANSOPRAZOLE [Concomitant]
     Dosage: 30 MG, UNK
  5. AMLODIPINE [Concomitant]
     Dosage: 5 MG, UNK
  6. ASPIRIN [Concomitant]
     Dosage: 81 MG, UNK
  7. MONTELUKAST [Concomitant]
     Dosage: 10 MG, UNK
  8. MULTI VITAMIN [Concomitant]
  9. CINNAMON [Concomitant]
     Dosage: 500 MG, UNK

REACTIONS (2)
  - Blindness [Unknown]
  - Visual impairment [Unknown]
